FAERS Safety Report 5092640-4 (Version None)
Quarter: 2006Q3

REPORT INFORMATION
  Report Type: 
  Country: None (occurrence: None)
  Receive Date: 20060828
  Receipt Date: 20060821
  Transmission Date: 20061208
  Serious: Yes (Other)
  Sender: FDA-Public Use
  Company Number: 2006095888

PATIENT
  Age: 24 Year
  Sex: Female
  Weight: 71.2147 kg

DRUGS (7)
  1. CYTOTEC [Suspect]
     Indication: ABORTION INDUCED
     Dosage: 600 MCG (ONE DOSE), ORAL
     Route: 048
     Dates: start: 20060802, end: 20060802
  2. CYTOTEC [Suspect]
     Indication: LABOUR INDUCTION
     Dosage: 600 MCG (ONE DOSE), ORAL
     Route: 048
     Dates: start: 20060802, end: 20060802
  3. COLACE (DOCUSATE SODIUM) [Concomitant]
  4. FERROUS GLUCONATE (FERROUS GLUCONATE) [Concomitant]
  5. LACTATED RINGER'S INJECTION (CALCIUM CHLORIDE DIHYDRATE, POTASSIUM CHL [Concomitant]
  6. ACETAMINOPHEN [Concomitant]
  7. MAGNESIUM SULFATE [Concomitant]

REACTIONS (6)
  - ANXIETY [None]
  - CHILLS [None]
  - DRUG EXPOSURE DURING PREGNANCY [None]
  - FLUSHING [None]
  - TACHYCARDIA [None]
  - TREMOR [None]
